FAERS Safety Report 8522600-X (Version None)
Quarter: 2012Q3

REPORT INFORMATION
  Report Type: 
  Country: None (occurrence: None)
  Receive Date: 20120719
  Receipt Date: 20120710
  Transmission Date: 20120928
  Serious: Yes (Life-Threatening, Other)
  Sender: FDA-Public Use
  Company Number: DE-CELGENEUS-062-50794-12070644

PATIENT
  Age: 79 Year
  Sex: Male

DRUGS (4)
  1. MARCUMAR [Concomitant]
     Route: 065
  2. VIDAZA [Suspect]
     Route: 058
     Dates: start: 20111201, end: 20120501
  3. TAMSULOSIN HCL [Concomitant]
     Route: 065
  4. BISOPROLOL FUMARATE [Concomitant]
     Dosage: 5 MILLIGRAM
     Route: 065

REACTIONS (1)
  - LUNG SQUAMOUS CELL CARCINOMA STAGE IV [None]
